FAERS Safety Report 12711388 (Version 3)
Quarter: 2016Q4

REPORT INFORMATION
  Report Type: Spontaneous
  Country: US (occurrence: US)
  Receive Date: 20160902
  Receipt Date: 20161214
  Transmission Date: 20170207
  Serious: Yes (Hospitalization)
  Sender: FDA-Public Use
  Company Number: US-PFIZER INC-2016007127

PATIENT
  Age: 95 Year
  Sex: Female
  Weight: 52.16 kg

DRUGS (5)
  1. VFEND [Suspect]
     Active Substance: VORICONAZOLE
     Indication: FUNGAL INFECTION
  2. AZITHROMYCIN ANHYDROUS. [Concomitant]
     Active Substance: AZITHROMYCIN ANHYDROUS
     Dosage: 500 MG, UNK(3X WEEK)
  3. PRESERVISION [Concomitant]
     Active Substance: MINERALS\VITAMINS
     Indication: EYE DISORDER
     Dosage: UNK UNK, 2X/DAY (ONE BY MOUTH IN THE MORNING AND AT NIGHT)
     Route: 048
  4. VFEND [Suspect]
     Active Substance: VORICONAZOLE
     Indication: ASPERGILLUS INFECTION
     Dosage: 200 MG, DAILY(1 PO DAILY FOR THE 1ST 7 DAYS OF EACH MONTH)
     Route: 048
     Dates: start: 2006
  5. VITAMIN B12 [Concomitant]
     Active Substance: CYANOCOBALAMIN
     Indication: ANAEMIA
     Dosage: 500 MG, 1X/DAY
     Route: 048

REACTIONS (9)
  - Herpes zoster [Recovered/Resolved]
  - Drug dose omission [Unknown]
  - Dyspnoea [Not Recovered/Not Resolved]
  - Intentional product misuse [Recovered/Resolved]
  - Decreased appetite [Unknown]
  - Fall [Recovered/Resolved]
  - Malaise [Unknown]
  - Balance disorder [Recovered/Resolved]
  - Ear pruritus [Not Recovered/Not Resolved]
